FAERS Safety Report 8584056-0 (Version None)
Quarter: 2012Q3

REPORT INFORMATION
  Report Type: 
  Country: None (occurrence: None)
  Receive Date: 20120810
  Receipt Date: 20120730
  Transmission Date: 20120928
  Serious: No
  Sender: FDA-Public Use
  Company Number: US-009507513-1207USA013132

PATIENT

DRUGS (3)
  1. FOSAMAX [Suspect]
     Route: 048
  2. BONIVA [Concomitant]
  3. ACTONEL [Concomitant]

REACTIONS (3)
  - ARTHRALGIA [None]
  - MYALGIA [None]
  - CHEST PAIN [None]
